FAERS Safety Report 18362330 (Version 2)
Quarter: 2020Q4

REPORT INFORMATION
  Report Type: Report from Study
  Country: BR (occurrence: BR)
  Receive Date: 20201008
  Receipt Date: 20201230
  Transmission Date: 20210114
  Serious: Yes (Other)
  Sender: FDA-Public Use
  Company Number: PHHY2015BR004426

PATIENT
  Sex: Male
  Weight: 48 kg

DRUGS (8)
  1. MIFLONIDE [Suspect]
     Active Substance: BUDESONIDE
     Indication: CHRONIC OBSTRUCTIVE PULMONARY DISEASE
     Dosage: 400 UG, QD (STARTED 2 MONTHS AGO)
     Route: 065
  2. SPIRIVA RESPIMAT [Concomitant]
     Active Substance: TIOTROPIUM BROMIDE
     Indication: CHRONIC OBSTRUCTIVE PULMONARY DISEASE
  3. MIFLONIDE [Suspect]
     Active Substance: BUDESONIDE
     Indication: EMPHYSEMA
     Dosage: UNK (ONCE A DAY IN THE MORNING AND SOMETIMES ALSO AT NIGHT) (START DATE WAS ATLEAST 4 YEARS AGO)
     Route: 065
  4. SPIRIVA RESPIMAT [Concomitant]
     Active Substance: TIOTROPIUM BROMIDE
     Indication: EMPHYSEMA
     Dosage: UNK UNK, QD (IN THE MORNING) (START DATE WAS ATLEAST 4 YEARS AGO)
     Route: 065
  5. ONBRIZE [Suspect]
     Active Substance: INDACATEROL MALEATE
     Dosage: UNK, QD (STARTED ATLEAST 4 YEARS AGO)
     Route: 065
  6. ONBRIZE [Suspect]
     Active Substance: INDACATEROL MALEATE
     Indication: CHRONIC OBSTRUCTIVE PULMONARY DISEASE
     Dosage: 300 UG, QD (STARTED 1 YEAR AGO)
     Route: 065
  7. ONBRIZE [Suspect]
     Active Substance: INDACATEROL MALEATE
     Indication: EMPHYSEMA
     Dosage: 150 UG (STARTED 2 YEARS AGO AND STOPPED 1 AND HAF YEAR AGO)
     Route: 065
  8. SPIRIVA [Suspect]
     Active Substance: TIOTROPIUM BROMIDE MONOHYDRATE
     Indication: EMPHYSEMA
     Dosage: UNK, QD (START DATE WAS 1 AND HALF MONTH AGO)
     Route: 065

REACTIONS (7)
  - Gait disturbance [Unknown]
  - Dysarthria [Unknown]
  - Speech disorder [Unknown]
  - Malaise [Not Recovered/Not Resolved]
  - Dyspnoea exertional [Unknown]
  - Dyspnoea [Recovering/Resolving]
  - Pulmonary function test decreased [Unknown]
